FAERS Safety Report 24213629 (Version 1)
Quarter: 2024Q3

REPORT INFORMATION
  Report Type: Spontaneous
  Country: US (occurrence: None)
  Receive Date: 20240815
  Receipt Date: 20240815
  Transmission Date: 20241017
  Serious: No
  Sender: Public
  Company Number: None

PATIENT
  Sex: Male

DRUGS (2)
  1. LUPRON [Suspect]
     Active Substance: LEUPROLIDE ACETATE
     Indication: Prostate cancer
     Dosage: 45MG EVERY 6 MONTHS INTRAMUSCULARLY?
     Route: 030
     Dates: start: 201607
  2. XTANDI [Suspect]
     Active Substance: ENZALUTAMIDE

REACTIONS (1)
  - Hospice care [None]
